FAERS Safety Report 5858382-X (Version None)
Quarter: 2008Q3

REPORT INFORMATION
  Report Type: 
  Country: None (occurrence: None)
  Receive Date: 20080822
  Receipt Date: 20080812
  Transmission Date: 20090109
  Serious: Yes (Other)
  Sender: FDA-Public Use
  Company Number: 2008SP016595

PATIENT
  Sex: Female

DRUGS (1)
  1. DRIXORAL [Suspect]
     Indication: RHINORRHOEA
     Dosage: ONCE; PO
     Route: 048
     Dates: start: 20080725

REACTIONS (1)
  - ARRHYTHMIA [None]
